FAERS Safety Report 25018341 (Version 1)
Quarter: 2025Q1

REPORT INFORMATION
  Report Type: Spontaneous
  Country: US (occurrence: US)
  Receive Date: 20250227
  Receipt Date: 20250227
  Transmission Date: 20250408
  Serious: No
  Sender: AVADEL CNS PHARMACEUTICALS, LLC
  Company Number: US-AVADEL CNS PHARMACEUTICALS, LLC-2025AVA00324

PATIENT
  Sex: Female

DRUGS (4)
  1. LUMRYZ [Suspect]
     Active Substance: SODIUM OXYBATE
  2. LUMRYZ [Suspect]
     Active Substance: SODIUM OXYBATE
  3. LUMRYZ [Suspect]
     Active Substance: SODIUM OXYBATE
  4. LUMRYZ [Suspect]
     Active Substance: SODIUM OXYBATE

REACTIONS (3)
  - Surgery [Recovered/Resolved]
  - Somnambulism [Unknown]
  - Product administration interrupted [Recovered/Resolved]
